FAERS Safety Report 10528046 (Version 2)
Quarter: 2014Q4

REPORT INFORMATION
  Report Type: Spontaneous
  Country: NL (occurrence: NL)
  Receive Date: 20141020
  Receipt Date: 20141106
  Transmission Date: 20150528
  Serious: Yes (Death, Hospitalization)
  Sender: FDA-Public Use
  Company Number: NL-ACTELION-A-CH2014-106629

PATIENT
  Age: 61 Year
  Sex: Female

DRUGS (1)
  1. TRACLEER [Suspect]
     Active Substance: BOSENTAN\BOSENTAN MONOHYDRATE
     Indication: PULMONARY ARTERIAL HYPERTENSION
     Dosage: UNK
     Route: 048
     Dates: start: 20110920, end: 20140929

REACTIONS (4)
  - Condition aggravated [Unknown]
  - Cardiac failure congestive [Unknown]
  - Death [Fatal]
  - Pulmonary arterial hypertension [Unknown]
